FAERS Safety Report 9332960 (Version 3)
Quarter: 2013Q3

REPORT INFORMATION
  Report Type: Spontaneous
  Country: GB (occurrence: GB)
  Receive Date: 20130606
  Receipt Date: 20130701
  Transmission Date: 20140515
  Serious: Yes (Other)
  Sender: FDA-Public Use
  Company Number: GB-ASTELLAS-2013EU004707

PATIENT
  Age: 68 Year
  Sex: Female

DRUGS (1)
  1. BETMIGA [Suspect]
     Indication: HYPERTONIC BLADDER
     Dosage: 50 MG, UID/QD
     Route: 048
     Dates: start: 20130418, end: 201304

REACTIONS (8)
  - Arthralgia [Recovered/Resolved]
  - Joint swelling [Recovered/Resolved]
  - Palpitations [Recovered/Resolved]
  - Rash [Recovered/Resolved]
  - Feeling hot [Recovered/Resolved]
  - Dyspepsia [Recovered/Resolved]
  - Malaise [Recovered/Resolved]
  - Nausea [Recovered/Resolved]
